FAERS Safety Report 8839719 (Version 2)
Quarter: 2012Q4

REPORT INFORMATION
  Report Type: 
  Country: BR (occurrence: BR)
  Receive Date: 20121015
  Receipt Date: 20121115
  Transmission Date: 20130627
  Serious: Yes (Hospitalization)
  Sender: FDA-Public Use
  Company Number: BR-ASTRAZENECA-2012SE77294

PATIENT
  Age: 46 Year
  Sex: Female

DRUGS (3)
  1. ACCOLATE [Suspect]
     Indication: ASTHMA
     Route: 048
  2. ADRENALINE [Concomitant]
     Indication: ASTHMA
  3. AMINOPHYLLINE [Concomitant]
     Indication: ASTHMA

REACTIONS (1)
  - Asthma [Recovered/Resolved]
